FAERS Safety Report 25128096 (Version 1)
Quarter: 2025Q1

REPORT INFORMATION
  Report Type: Spontaneous
  Country: GB (occurrence: GB)
  Receive Date: 20250327
  Receipt Date: 20250327
  Transmission Date: 20250408
  Serious: Yes (Other)
  Sender: HIKMA
  Company Number: None

PATIENT
  Age: 56 Year
  Sex: Female
  Weight: 78 kg

DRUGS (2)
  1. CIPROFLOXACIN [Suspect]
     Active Substance: CIPROFLOXACIN
     Indication: Intestinal perforation
     Route: 042
     Dates: start: 20250216, end: 20250216
  2. FLUOCINOLONE [Suspect]
     Active Substance: FLUOCINOLONE
     Indication: Intestinal perforation
     Route: 042
     Dates: start: 20250216, end: 20250216

REACTIONS (7)
  - Oropharyngeal pain [Unknown]
  - Arthralgia [Unknown]
  - Dysphagia [Unknown]
  - Tendonitis [Recovering/Resolving]
  - Muscular weakness [Unknown]
  - Weight bearing difficulty [Unknown]
  - Grip strength decreased [Unknown]
